FAERS Safety Report 4516829-5 (Version None)
Quarter: 2004Q4

REPORT INFORMATION
  Report Type: 
  Country: None (occurrence: None)
  Receive Date: 20041202
  Receipt Date: 20030616
  Transmission Date: 20050328
  Serious: Yes (Hospitalization, Other)
  Sender: FDA-Public Use
  Company Number: FR-GLAXOSMITHKLINE-B0302187A

PATIENT
  Age: 75 Year
  Sex: Male
  Weight: 88 kg

DRUGS (6)
  1. AVANDIA [Suspect]
     Dosage: 4MG PER DAY
     Route: 048
     Dates: start: 20030505, end: 20030514
  2. AMIODARONE HCL [Suspect]
     Indication: ATRIAL FIBRILLATION
     Dosage: 200MG SEE DOSAGE TEXT
     Route: 048
     Dates: start: 20000701, end: 20030514
  3. TENORMIN [Suspect]
     Indication: VENTRICULAR EXTRASYSTOLES
     Dosage: 50MG PER DAY
     Route: 048
     Dates: start: 20000801, end: 20030514
  4. GLYBURIDE [Concomitant]
     Dosage: 5MG THREE TIMES PER DAY
     Route: 048
  5. FUROSEMIDE [Concomitant]
     Dosage: 20MG PER DAY
     Route: 048
     Dates: start: 20030301
  6. LIPANOR [Concomitant]
     Dosage: 100MG PER DAY
     Route: 048

REACTIONS (11)
  - ASTHENIA [None]
  - ATRIOVENTRICULAR BLOCK FIRST DEGREE [None]
  - BRADYCARDIA [None]
  - CARDIAC FAILURE [None]
  - CARDIOMEGALY [None]
  - COUGH [None]
  - DYSPNOEA [None]
  - MALAISE [None]
  - OEDEMA PERIPHERAL [None]
  - PULMONARY HYPERTENSION [None]
  - SYNCOPE [None]
